FAERS Safety Report 9892791 (Version 2)
Quarter: 2014Q1

REPORT INFORMATION
  Report Type: Spontaneous
  Country: CA (occurrence: CA)
  Receive Date: 20140212
  Receipt Date: 20140212
  Transmission Date: 20141002
  Serious: Yes (Other)
  Sender: FDA-Public Use
  Company Number: CA-BAXTER-2014BAX000922

PATIENT
  Age: 67 Year
  Sex: Male

DRUGS (7)
  1. DIANEAL PD4 SOLUTION WITH 2.5% DEXTROSE AND 2.5 MEQ/L CALCIUM [Suspect]
     Indication: PERITONEAL DIALYSIS
     Route: 033
     Dates: start: 20140106, end: 20140112
  2. DIANEAL PD4 SOLUTION WITH 2.5% DEXTROSE AND 2.5 MEQ/L CALCIUM [Suspect]
     Route: 033
     Dates: start: 20140127
  3. DIANEAL PD4 SOLUTION WITH 4.25% DEXTROSE AND 2.5 MEQ/L CALCIUM [Suspect]
     Indication: PERITONEAL DIALYSIS
     Route: 033
     Dates: start: 20140106, end: 20140112
  4. DIANEAL PD4 SOLUTION WITH 4.25% DEXTROSE AND 2.5 MEQ/L CALCIUM [Suspect]
     Route: 033
     Dates: start: 20140127
  5. EXTRANEAL [Suspect]
     Indication: PERITONEAL DIALYSIS
     Route: 033
     Dates: start: 20140109, end: 20140112
  6. EXTRANEAL [Suspect]
     Route: 033
     Dates: start: 20140127
  7. TERAZOSIN [Concomitant]
     Indication: HYPERTENSION
     Dosage: 5 MG AM AND 5MG NIGHT

REACTIONS (5)
  - Speech disorder [Unknown]
  - Balance disorder [Unknown]
  - Ultrafiltration failure [Unknown]
  - Asthenia [Unknown]
  - Hypertension [Recovering/Resolving]
